FAERS Safety Report 9504826 (Version 1)
Quarter: 2013Q3

REPORT INFORMATION
  Report Type: Spontaneous
  Country: US (occurrence: US)
  Receive Date: 20130906
  Receipt Date: 20130906
  Transmission Date: 20140515
  Serious: Yes (Hospitalization)
  Sender: FDA-Public Use
  Company Number: US-ABBOTT-13P-163-1139826-00

PATIENT
  Age: 17 Year
  Sex: Male
  Weight: 59.93 kg

DRUGS (3)
  1. HUMIRA [Suspect]
     Indication: APLASIA PURE RED CELL
     Route: 058
     Dates: start: 20130130, end: 20130709
  2. HUMIRA [Suspect]
     Route: 058
     Dates: start: 20130726
  3. CENTRUM MULTIVITAMIN [Concomitant]
     Indication: PRODUCT USED FOR UNKNOWN INDICATION

REACTIONS (1)
  - Intestinal obstruction [Recovered/Resolved]
